FAERS Safety Report 13069628 (Version 3)
Quarter: 2017Q1

REPORT INFORMATION
  Report Type: Spontaneous
  Country: JP (occurrence: JP)
  Receive Date: 20161228
  Receipt Date: 20170130
  Transmission Date: 20170428
  Serious: Yes (Death)
  Sender: FDA-Public Use
  Company Number: JP-NAPPMUNDI-GBR-2016-0042371

PATIENT
  Age: 79 Year
  Sex: Male

DRUGS (6)
  1. NORSPAN [Suspect]
     Active Substance: BUPRENORPHINE
     Indication: LUMBAR SPINAL STENOSIS
     Dosage: 5 MCG, Q1H
     Route: 062
     Dates: start: 201611, end: 20161128
  2. KIPRES [Concomitant]
     Active Substance: MONTELUKAST SODIUM
     Route: 048
  3. DEPAS [Concomitant]
     Active Substance: ETIZOLAM
     Route: 048
  4. SILECE [Concomitant]
     Active Substance: FLUNITRAZEPAM
  5. HALCION [Concomitant]
     Active Substance: TRIAZOLAM
     Route: 048
  6. HOKUNALIN                          /00654901/ [Concomitant]
     Active Substance: TULOBUTEROL

REACTIONS (2)
  - Somnolence [Unknown]
  - General physical health deterioration [Fatal]

NARRATIVE: CASE EVENT DATE: 20161128
